FAERS Safety Report 10075927 (Version 2)
Quarter: 2014Q2

REPORT INFORMATION
  Report Type: Spontaneous
  Country: BR (occurrence: BR)
  Receive Date: 20140414
  Receipt Date: 20140414
  Transmission Date: 20141212
  Serious: Yes (Death)
  Sender: FDA-Public Use
  Company Number: BR-PFIZER INC-2013309661

PATIENT
  Age: 54 Year
  Sex: Female

DRUGS (1)
  1. SUTENT [Suspect]
     Indication: RENAL CELL CARCINOMA
     Dosage: 50 MG, DAILY (4 WEEKS ON, 2 WEEKS OFF)
     Route: 048
     Dates: start: 20131025

REACTIONS (3)
  - Death [Fatal]
  - Diarrhoea [Unknown]
  - Vomiting [Unknown]
